FAERS Safety Report 8060706-2 (Version None)
Quarter: 2012Q1

REPORT INFORMATION
  Report Type: 
  Country: None (occurrence: None)
  Receive Date: 20120120
  Receipt Date: 20120105
  Transmission Date: 20120608
  Serious: Yes (Hospitalization)
  Sender: FDA-Public Use
  Company Number: US-WATSON-2012-00612

PATIENT
  Age: 55 Year
  Sex: Female

DRUGS (1)
  1. GEMCITABINE [Suspect]
     Indication: ADENOCARCINOMA PANCREAS
     Dosage: 40 MG/M2, 2/WEEK

REACTIONS (1)
  - MYOSITIS [None]
